FAERS Safety Report 23188918 (Version 3)
Quarter: 2024Q1

REPORT INFORMATION
  Report Type: Spontaneous
  Country: PT (occurrence: BR)
  Receive Date: 20231115
  Receipt Date: 20240315
  Transmission Date: 20240410
  Serious: Yes (Other)
  Sender: FDA-Public Use
  Company Number: PT-NOVOPROD-1137893

PATIENT
  Age: 70 Year
  Sex: Female
  Weight: 63.5 kg

DRUGS (2)
  1. RYBELSUS [Suspect]
     Active Substance: SEMAGLUTIDE
     Dosage: UNK (RESUMED )
     Route: 048
     Dates: start: 2024
  2. RYBELSUS [Suspect]
     Active Substance: SEMAGLUTIDE
     Indication: Obesity
     Dosage: 7 MG, QD
     Route: 048
     Dates: start: 20230505, end: 20230930

REACTIONS (4)
  - Visual acuity reduced [Recovering/Resolving]
  - Macular degeneration [Not Recovered/Not Resolved]
  - Off label use [Unknown]
  - Off label use [Unknown]

NARRATIVE: CASE EVENT DATE: 20230505
